FAERS Safety Report 25129829 (Version 2)
Quarter: 2025Q3

REPORT INFORMATION
  Report Type: Spontaneous
  Country: GB (occurrence: GB)
  Receive Date: 20250327
  Receipt Date: 20250809
  Transmission Date: 20251021
  Serious: Yes (Other)
  Sender: ALEXION PHARMACEUTICALS
  Company Number: GB-ASTRAZENECA-202503GLO023505GB

PATIENT
  Age: 81 Year
  Sex: Male
  Weight: 84 kg

DRUGS (29)
  1. OMEPRAZOLE [Suspect]
     Active Substance: OMEPRAZOLE
     Dosage: UNK, BID
     Dates: start: 20230628, end: 20250106
  2. MINERAL OIL\PARAFFIN [Concomitant]
     Active Substance: MINERAL OIL\PARAFFIN
     Route: 065
     Dates: start: 20250207, end: 20250307
  3. FOSFOMYCIN [Concomitant]
     Active Substance: FOSFOMYCIN
     Route: 065
     Dates: start: 20250207, end: 20250210
  4. DICLOFENAC SODIUM [Concomitant]
     Active Substance: DICLOFENAC SODIUM
     Route: 065
     Dates: start: 20250214, end: 20250228
  5. Alginate [Concomitant]
     Route: 065
  6. ALLOPURINOL [Concomitant]
     Active Substance: ALLOPURINOL
     Dosage: ONE TO BE TAKEN EVERY DAY
     Route: 065
     Dates: start: 20230628
  7. ATORVASTATIN [Concomitant]
     Active Substance: ATORVASTATIN
     Indication: Hyperlipidaemia
     Route: 065
  8. BUMETANIDE [Concomitant]
     Active Substance: BUMETANIDE
     Route: 065
  9. CARVEDILOL [Concomitant]
     Active Substance: CARVEDILOL
     Route: 065
  10. FINASTERIDE [Concomitant]
     Active Substance: FINASTERIDE
     Indication: Benign prostatic hyperplasia
     Route: 065
  11. LATANOPROST [Concomitant]
     Active Substance: LATANOPROST
     Indication: Glaucoma
     Route: 065
  12. ACETAMINOPHEN [Concomitant]
     Active Substance: ACETAMINOPHEN
     Indication: Pain
     Route: 065
  13. DAPAGLIFLOZIN [Concomitant]
     Active Substance: DAPAGLIFLOZIN
     Route: 065
  14. RIVAROXABAN [Concomitant]
     Active Substance: RIVAROXABAN
     Route: 065
  15. GABAPENTIN [Concomitant]
     Active Substance: GABAPENTIN
     Route: 065
  16. DORZOLAMIDE [Concomitant]
     Active Substance: DORZOLAMIDE
     Route: 065
  17. SENNA [Concomitant]
     Active Substance: SENNOSIDES
     Route: 065
  18. TAMSULOSIN HYDROCHLORIDE [Concomitant]
     Active Substance: TAMSULOSIN HYDROCHLORIDE
     Route: 065
  19. AMITRIPTYLINE HYDROCHLORIDE [Concomitant]
     Active Substance: AMITRIPTYLINE HYDROCHLORIDE
     Route: 065
  20. ROTIGOTINE [Concomitant]
     Active Substance: ROTIGOTINE
     Indication: Ill-defined disorder
     Route: 065
  21. FERROUS FUMARATE [Concomitant]
     Active Substance: FERROUS FUMARATE
     Route: 065
  22. LAMOTRIGINE [Concomitant]
     Active Substance: LAMOTRIGINE
     Indication: Epilepsy
     Route: 065
  23. CETOSTEARYL ALCOHOL [Concomitant]
     Active Substance: CETOSTEARYL ALCOHOL
     Indication: Dry skin
     Route: 065
     Dates: start: 20250207, end: 20250307
  24. PETROLATUM [Concomitant]
     Active Substance: PETROLATUM
     Indication: Dry skin
     Route: 065
     Dates: start: 20250207, end: 20250307
  25. GLYCERIN [Concomitant]
     Active Substance: GLYCERIN
     Indication: Dry skin
     Route: 065
     Dates: start: 20250207, end: 20250307
  26. COSMETICS [Concomitant]
     Active Substance: COSMETICS
     Indication: Dry skin
     Route: 065
     Dates: start: 20250207, end: 20250307
  27. METHYLPARABEN [Concomitant]
     Active Substance: METHYLPARABEN
     Indication: Dry skin
     Route: 065
     Dates: start: 20250207, end: 20250307
  28. PROPYLPARABEN [Concomitant]
     Active Substance: PROPYLPARABEN
     Indication: Dry skin
     Route: 065
     Dates: start: 20250207, end: 20250307
  29. PROPYLPARABEN [Concomitant]
     Active Substance: PROPYLPARABEN
     Route: 065

REACTIONS (2)
  - Seizure [Recovered/Resolved]
  - Blood magnesium decreased [Unknown]

NARRATIVE: CASE EVENT DATE: 20250106
